FAERS Safety Report 4499704-4 (Version None)
Quarter: 2004Q4

REPORT INFORMATION
  Report Type: 
  Country: None (occurrence: None)
  Receive Date: 20041108
  Receipt Date: 20041028
  Transmission Date: 20050328
  Serious: Yes (Death)
  Sender: FDA-Public Use
  Company Number: 2004-10-1870

PATIENT
  Age: 82 Year
  Sex: Female

DRUGS (2)
  1. GENTAMICIN SULFATE [Suspect]
     Indication: INFECTION
     Dosage: SEE IMAGE
  2. GENTAMICIN SULFATE [Suspect]
     Indication: LARGE INTESTINE PERFORATION
     Dosage: SEE IMAGE

REACTIONS (1)
  - DISSEMINATED INTRAVASCULAR COAGULATION [None]
